FAERS Safety Report 15745679 (Version 1)
Quarter: 2018Q4

REPORT INFORMATION
  Report Type: Spontaneous
  Country: US (occurrence: US)
  Receive Date: 20181220
  Receipt Date: 20181220
  Transmission Date: 20190205
  Serious: Yes (Other)
  Sender: FDA-Public Use
  Company Number: PHHY2018US187011

PATIENT
  Sex: Female

DRUGS (3)
  1. AZATHIOPRINE. [Suspect]
     Active Substance: AZATHIOPRINE
     Indication: DERMATOMYOSITIS
     Dosage: UNK
     Route: 065
  2. METHOTREXATE. [Suspect]
     Active Substance: METHOTREXATE
     Indication: DERMATOMYOSITIS
     Route: 065
  3. PREDNISONE. [Suspect]
     Active Substance: PREDNISONE
     Indication: DERMATOMYOSITIS
     Dosage: UNK
     Route: 065

REACTIONS (14)
  - Cytomegalovirus viraemia [Unknown]
  - Systemic inflammatory response syndrome [Unknown]
  - Tachycardia [Unknown]
  - Hypotension [Unknown]
  - Butterfly rash [Recovering/Resolving]
  - Product use in unapproved indication [Unknown]
  - Rash [Unknown]
  - Overlap syndrome [Unknown]
  - Pyrexia [Unknown]
  - Hyponatraemia [Unknown]
  - Systemic lupus erythematosus [Unknown]
  - Leukopenia [Recovered/Resolved]
  - Pain [Unknown]
  - Transaminases increased [Unknown]
